FAERS Safety Report 24631367 (Version 2)
Quarter: 2025Q2

REPORT INFORMATION
  Report Type: Spontaneous
  Country: US (occurrence: US)
  Receive Date: 20241118
  Receipt Date: 20250530
  Transmission Date: 20250716
  Serious: No
  Sender: LEO PHARM
  Company Number: US-LEO Pharma-375097

PATIENT
  Age: 34 Year
  Sex: Female

DRUGS (1)
  1. ADBRY [Suspect]
     Active Substance: TRALOKINUMAB-LDRM
     Indication: Dermatitis atopic
     Dosage: TREATMENT IS ONGOING
     Route: 058
     Dates: start: 202405

REACTIONS (4)
  - Dry skin [Unknown]
  - Burning sensation [Unknown]
  - Therapeutic product effect incomplete [Unknown]
  - Dermatitis atopic [Unknown]
